FAERS Safety Report 16141212 (Version 1)
Quarter: 2019Q2

REPORT INFORMATION
  Report Type: Spontaneous
  Country: US (occurrence: US)
  Receive Date: 20190401
  Receipt Date: 20190401
  Transmission Date: 20190711
  Serious: Yes (Other)
  Sender: FDA-Public Use
  Company Number: US-AMREGENT-20190615

PATIENT

DRUGS (2)
  1. LIDOCAINE HCL INJECTION, USP (0517-9402-01) [Suspect]
     Active Substance: LIDOCAINE HYDROCHLORIDE
     Dosage: UNKNOWN
     Route: 042
  2. BENZOCAINE. [Suspect]
     Active Substance: BENZOCAINE
     Dosage: UNKNOWN
     Route: 065

REACTIONS (1)
  - Methaemoglobinaemia [Unknown]
